FAERS Safety Report 10161978 (Version 1)
Quarter: 2014Q2

REPORT INFORMATION
  Report Type: Spontaneous
  Country: US (occurrence: US)
  Receive Date: 20140509
  Receipt Date: 20140509
  Transmission Date: 20141212
  Serious: Yes (Death)
  Sender: FDA-Public Use
  Company Number: US-INCYTE CORPORATION-2014IN001197

PATIENT
  Age: 64 Year
  Sex: Male

DRUGS (8)
  1. JAKAFI [Suspect]
     Indication: MYELODYSPLASTIC SYNDROME
     Dosage: 15 MG, BID
     Route: 048
     Dates: start: 20120918, end: 20140505
  2. ALLOPURINOL [Concomitant]
  3. ZESTRIL [Concomitant]
  4. LASIX                              /00032601/ [Concomitant]
  5. PROCRIT                            /00909301/ [Concomitant]
  6. METOPROLOL [Concomitant]
  7. AXIRON [Concomitant]
  8. TAMSULOSIN [Concomitant]

REACTIONS (1)
  - Death [Fatal]
